FAERS Safety Report 5136708-2 (Version None)
Quarter: 2006Q4

REPORT INFORMATION
  Report Type: 
  Country: None (occurrence: None)
  Receive Date: 20061023
  Receipt Date: 20061013
  Transmission Date: 20070319
  Serious: Yes (Other)
  Sender: FDA-Public Use
  Company Number: 061016-0000883

PATIENT
  Age: 4 Year
  Sex: Female

DRUGS (4)
  1. L-ASPARAGINASE (ASPARAGINASE) [Suspect]
     Indication: ACUTE LYMPHOCYTIC LEUKAEMIA
  2. VINCRISTINE [Suspect]
     Indication: ACUTE LYMPHOCYTIC LEUKAEMIA
  3. DAUNORUBICIN HCL [Suspect]
     Indication: ACUTE LYMPHOCYTIC LEUKAEMIA
  4. PREDNISOLONE [Suspect]
     Indication: ACUTE LYMPHOCYTIC LEUKAEMIA

REACTIONS (11)
  - ANTITHROMBIN III DECREASED [None]
  - BLOOD FIBRINOGEN DECREASED [None]
  - CHOROIDAL INFARCTION [None]
  - LEUKAEMIA RECURRENT [None]
  - MACULAR DEGENERATION [None]
  - PRESYNCOPE [None]
  - RETINAL EXUDATES [None]
  - RETINAL OEDEMA [None]
  - SEPSIS [None]
  - STRABISMUS [None]
  - VISUAL ACUITY REDUCED [None]
